FAERS Safety Report 9245821 (Version 1)
Quarter: 2013Q2

REPORT INFORMATION
  Report Type: Spontaneous
  Country: US (occurrence: US)
  Receive Date: 20130422
  Receipt Date: 20130422
  Transmission Date: 20140414
  Serious: No
  Sender: FDA-Public Use
  Company Number: US-BRISTOL-MYERS SQUIBB COMPANY-17449851

PATIENT
  Age: 75 Year
  Sex: Female
  Weight: 55.78 kg

DRUGS (5)
  1. ELIQUIS [Suspect]
     Indication: ATRIAL FIBRILLATION
  2. ATENOLOL [Concomitant]
  3. NORVASC [Concomitant]
  4. MULTAQ [Concomitant]
  5. VITAMINS [Concomitant]

REACTIONS (2)
  - Chills [Unknown]
  - Arthritis [Unknown]
